FAERS Safety Report 13729610 (Version 1)
Quarter: 2017Q3

REPORT INFORMATION
  Report Type: Spontaneous
  Country: FR (occurrence: FR)
  Receive Date: 20170707
  Receipt Date: 20170707
  Transmission Date: 20171127
  Serious: Yes (Other)
  Sender: FDA-Public Use
  Company Number: FR-009507513-1701FRA013043

PATIENT
  Age: 38 Year
  Sex: Female
  Weight: 95 kg

DRUGS (1)
  1. ETONOGESTREL IMPLANT- UNKNOWN [Suspect]
     Active Substance: ETONOGESTREL
     Indication: CONTRACEPTION
     Dosage: 1 DF, UNK, RIGHT ARM
     Route: 059
     Dates: start: 201208, end: 20161213

REACTIONS (4)
  - Pregnancy with implant contraceptive [Recovered/Resolved]
  - Incorrect drug administration duration [Unknown]
  - Unintended pregnancy [Recovered/Resolved]
  - Gestational diabetes [Unknown]

NARRATIVE: CASE EVENT DATE: 2015
